FAERS Safety Report 8329976-7 (Version None)
Quarter: 2012Q2

REPORT INFORMATION
  Report Type: 
  Country: None (occurrence: None)
  Receive Date: 20120502
  Receipt Date: 20091211
  Transmission Date: 20120825
  Serious: No
  Sender: FDA-Public Use
  Company Number: US-TEVA-2009029684

PATIENT
  Sex: Female
  Weight: 90.8 kg

DRUGS (10)
  1. METFORMIN HCL [Concomitant]
     Indication: DIABETES MELLITUS
     Dosage: 1000 MILLIGRAM;
     Dates: start: 19870101
  2. SYNTHROID [Concomitant]
     Indication: HYPOTHYROIDISM
     Dosage: 150 MICROGRAM;
     Dates: start: 19740101
  3. DIOVAN HCT [Concomitant]
     Indication: HYPERTENSION
     Dosage: 160/12.5MG
     Dates: start: 20010101
  4. DICLOFENAC EC [Concomitant]
     Indication: MYALGIA
     Dosage: 75 MILLIGRAM;
     Dates: start: 20060101
  5. NUVIGIL [Suspect]
     Indication: SLEEP APNOEA SYNDROME
     Dosage: 250 MILLIGRAM;
     Route: 048
     Dates: start: 20091211
  6. NOVOLOG [Concomitant]
     Indication: TYPE 1 DIABETES MELLITUS
     Dates: start: 20080101
  7. NUVIGIL [Suspect]
     Indication: SOMNOLENCE
  8. FLUOXETINE [Concomitant]
     Indication: DEPRESSION
     Dosage: 40 MILLIGRAM;
     Dates: start: 20070101
  9. TAZTIA XT [Concomitant]
     Indication: HYPERTENSION
     Dates: start: 20010101
  10. ISOSORBIDE MONONITRATE [Concomitant]
     Dosage: 30 MILLIGRAM;
     Dates: start: 19970101

REACTIONS (2)
  - BLOOD PRESSURE INCREASED [None]
  - HEADACHE [None]
